FAERS Safety Report 11723103 (Version 1)
Quarter: 2015Q4

REPORT INFORMATION
  Report Type: Spontaneous
  Country: US (occurrence: US)
  Receive Date: 20151111
  Receipt Date: 20151111
  Transmission Date: 20160304
  Serious: Yes (Hospitalization)
  Sender: FDA-Public Use
  Company Number: US-SA-2015SA173406

PATIENT
  Age: 73 Year
  Sex: Male

DRUGS (6)
  1. LOVENOX [Suspect]
     Active Substance: ENOXAPARIN SODIUM
     Indication: THROMBOSIS
     Route: 051
     Dates: start: 2005
  2. LOVENOX [Suspect]
     Active Substance: ENOXAPARIN SODIUM
     Indication: THROMBOSIS
     Route: 051
     Dates: start: 2005
  3. LOVENOX [Suspect]
     Active Substance: ENOXAPARIN SODIUM
     Indication: POSTOPERATIVE CARE
     Route: 051
     Dates: start: 2005
  4. LOVENOX [Suspect]
     Active Substance: ENOXAPARIN SODIUM
     Indication: POSTOPERATIVE CARE
     Route: 051
     Dates: start: 2005
  5. LOVENOX [Suspect]
     Active Substance: ENOXAPARIN SODIUM
     Indication: DEEP VEIN THROMBOSIS
     Route: 051
     Dates: start: 2005
  6. LOVENOX [Suspect]
     Active Substance: ENOXAPARIN SODIUM
     Indication: DEEP VEIN THROMBOSIS
     Route: 051
     Dates: start: 2005

REACTIONS (3)
  - Cough [Unknown]
  - Surgery [Unknown]
  - Headache [Unknown]
